FAERS Safety Report 10548611 (Version 1)
Quarter: 2014Q4

REPORT INFORMATION
  Report Type: Spontaneous
  Country: GB (occurrence: GB)
  Receive Date: 20141028
  Receipt Date: 20141028
  Transmission Date: 20150529
  Serious: Yes (Hospitalization, Other)
  Sender: FDA-Public Use
  Company Number: GB-ASTELLAS-2014US015882

PATIENT
  Age: 44 Year
  Sex: Male

DRUGS (1)
  1. ERLOTINIB [Suspect]
     Active Substance: ERLOTINIB
     Indication: PRODUCT USED FOR UNKNOWN INDICATION
     Route: 065

REACTIONS (9)
  - Metastasis [Unknown]
  - Back pain [Unknown]
  - Pelvic pain [Unknown]
  - Arthralgia [Unknown]
  - Bone pain [Unknown]
  - Muscular weakness [Unknown]
  - Motor dysfunction [Unknown]
  - Rash [Unknown]
  - Sensory loss [Unknown]
